FAERS Safety Report 6715867-1 (Version None)
Quarter: 2010Q2

REPORT INFORMATION
  Report Type: 
  Country: None (occurrence: None)
  Receive Date: 20100507
  Receipt Date: 20100429
  Transmission Date: 20101027
  Serious: Yes (Hospitalization)
  Sender: FDA-Public Use
  Company Number: US-BAYER-201018917NA

PATIENT
  Age: 62 Year
  Sex: Female

DRUGS (2)
  1. NEXAVAR [Suspect]
     Indication: HEPATIC NEOPLASM MALIGNANT
     Dosage: TOTAL DAILY DOSE: 400 MG  UNIT DOSE: 200 MG
     Route: 048
     Dates: start: 20100330, end: 20100421
  2. LACTULOSE [Concomitant]

REACTIONS (4)
  - ABDOMINAL PAIN [None]
  - AMMONIA INCREASED [None]
  - FREQUENT BOWEL MOVEMENTS [None]
  - URINARY TRACT INFECTION [None]
